FAERS Safety Report 18448474 (Version 1)
Quarter: 2020Q4

REPORT INFORMATION
  Report Type: Spontaneous
  Country: FR (occurrence: FR)
  Receive Date: 20201031
  Receipt Date: 20201031
  Transmission Date: 20210114
  Serious: Yes (Hospitalization)
  Sender: FDA-Public Use
  Company Number: FR-TEVA-2020-FR-1842787

PATIENT
  Age: 62 Year
  Sex: Female

DRUGS (4)
  1. VINCRISTINE (SULFATE DE) [Suspect]
     Active Substance: VINCRISTINE SULFATE
     Indication: ACUTE LYMPHOCYTIC LEUKAEMIA
     Dosage: 1 DOSAGE FORMS
     Route: 042
     Dates: start: 20200821
  2. DOXORUBICINE [Suspect]
     Active Substance: DOXORUBICIN
     Indication: ACUTE LYMPHOCYTIC LEUKAEMIA
     Dosage: 1 DOSAGE FORMS
     Route: 042
     Dates: start: 20200821
  3. ENDOXAN [Suspect]
     Active Substance: CYCLOPHOSPHAMIDE
     Indication: ACUTE LYMPHOCYTIC LEUKAEMIA
     Dosage: 1 DOSAGE FORMS
     Route: 042
     Dates: start: 20200821
  4. KIDROLASE 10 000 U.I., POUDRE ET SOLVANT POUR SOLUTION INJECTABLE [Suspect]
     Active Substance: ASPARAGINASE
     Indication: ACUTE LYMPHOCYTIC LEUKAEMIA
     Dosage: 1 DOSAGE FORMS
     Route: 042
     Dates: start: 20200828, end: 20200907

REACTIONS (3)
  - Hepatic steatosis [Not Recovered/Not Resolved]
  - Hepatocellular injury [Not Recovered/Not Resolved]
  - Cholestasis [Not Recovered/Not Resolved]

NARRATIVE: CASE EVENT DATE: 20200907
